FAERS Safety Report 14093842 (Version 1)
Quarter: 2017Q4

REPORT INFORMATION
  Report Type: Spontaneous
  Country: JP (occurrence: JP)
  Receive Date: 20171016
  Receipt Date: 20171016
  Transmission Date: 20180321
  Serious: Yes (Death, Other)
  Sender: FDA-Public Use
  Company Number: JP-PFIZER INC-2017338922

PATIENT
  Age: 98 Year
  Sex: Female
  Weight: 39.1 kg

DRUGS (6)
  1. VFEND [Suspect]
     Active Substance: VORICONAZOLE
     Indication: BRONCHOPULMONARY ASPERGILLOSIS
     Dosage: 150 MG, 2X/DAY
     Route: 048
     Dates: start: 20170728, end: 20170728
  2. CALFINA [Suspect]
     Active Substance: ALFACALCIDOL
     Indication: OSTEOPOROSIS
     Dosage: 0.5 UG, 1X/DAY
     Route: 048
     Dates: start: 20170729, end: 20170804
  3. FUNGUARD [Suspect]
     Active Substance: MICAFUNGIN SODIUM
     Indication: BRONCHOPULMONARY ASPERGILLOSIS
     Dosage: 50 MG, 1X/DAY
     Route: 042
     Dates: start: 20170728, end: 20170804
  4. VFEND [Suspect]
     Active Substance: VORICONAZOLE
     Dosage: 100 MG, 2X/DAY
     Route: 048
     Dates: start: 20170729, end: 20170804
  5. LECTISOL [Suspect]
     Active Substance: DAPSONE
     Indication: ANTIFUNGAL PROPHYLAXIS
     Dosage: 25 MG, 2X/DAY
     Route: 048
     Dates: start: 20170721, end: 20170725
  6. BAKTAR [Concomitant]
     Active Substance: SULFAMETHOXAZOLE\TRIMETHOPRIM
     Indication: ANTIFUNGAL PROPHYLAXIS
     Dosage: 1 G, 1X/DAY
     Route: 048
     Dates: start: 20170629, end: 20170711

REACTIONS (8)
  - Creatinine renal clearance increased [Unknown]
  - Altered state of consciousness [Unknown]
  - Condition aggravated [Fatal]
  - Blood pressure decreased [Unknown]
  - Hyperhidrosis [Unknown]
  - Hepatic function abnormal [Recovering/Resolving]
  - Renal impairment [Fatal]
  - Chest pain [Unknown]

NARRATIVE: CASE EVENT DATE: 20170728
